FAERS Safety Report 18162569 (Version 2)
Quarter: 2020Q3

REPORT INFORMATION
  Report Type: Spontaneous
  Country: US (occurrence: US)
  Receive Date: 20200818
  Receipt Date: 20200825
  Transmission Date: 20201103
  Serious: Yes (Other)
  Sender: FDA-Public Use
  Company Number: US-ASTRAZENECA-2020SF02782

PATIENT
  Age: 26552 Day
  Sex: Male
  Weight: 80.7 kg

DRUGS (1)
  1. SYMBICORT [Suspect]
     Active Substance: BUDESONIDE\FORMOTEROL FUMARATE DIHYDRATE
     Indication: CHRONIC OBSTRUCTIVE PULMONARY DISEASE
     Dosage: 160/4.5 MCG, TWO PUFFS TWICE A DAY FOR A LONG TIME
     Route: 055

REACTIONS (3)
  - Product dispensing error [Unknown]
  - Circumstance or information capable of leading to medication error [Unknown]
  - Laryngitis [Unknown]

NARRATIVE: CASE EVENT DATE: 20200730
